FAERS Safety Report 19058180 (Version 1)
Quarter: 2021Q1

REPORT INFORMATION
  Report Type: Spontaneous
  Country: US (occurrence: US)
  Receive Date: 20210324
  Receipt Date: 20210324
  Transmission Date: 20210420
  Serious: No
  Sender: FDA-Public Use
  Company Number: US-TEVA-2021-US-1893248

PATIENT
  Age: 74 Year
  Sex: Female

DRUGS (2)
  1. MUPIROCIN 2% [Suspect]
     Active Substance: MUPIROCIN
     Indication: RASH
     Route: 065
     Dates: start: 202103, end: 202103
  2. CEFALEXIN [Suspect]
     Active Substance: CEPHALEXIN
     Dosage: 1500 MILLIGRAM DAILY; 500MG ONCE EVERY 8 HOURS, NO LOT, OR EXPIRATION
     Route: 065
     Dates: start: 202103, end: 202103

REACTIONS (1)
  - Therapeutic product effect incomplete [Unknown]

NARRATIVE: CASE EVENT DATE: 202103
